FAERS Safety Report 13771312 (Version 1)
Quarter: 2017Q3

REPORT INFORMATION
  Report Type: Spontaneous
  Country: CN (occurrence: CN)
  Receive Date: 20170720
  Receipt Date: 20170720
  Transmission Date: 20171127
  Serious: Yes (Death, Other)
  Sender: FDA-Public Use
  Company Number: CN-TAKEDA-2017MPI006253

PATIENT

DRUGS (3)
  1. VELCADE [Suspect]
     Active Substance: BORTEZOMIB
     Indication: ACUTE MYELOID LEUKAEMIA
     Dosage: 1.3 MG/M2, QD
     Route: 042
  2. CYTARABINE. [Suspect]
     Active Substance: CYTARABINE
     Indication: ACUTE MYELOID LEUKAEMIA
     Dosage: 100 MG/M2, QD
     Route: 041
  3. DAUNORUBICIN [Suspect]
     Active Substance: DAUNORUBICIN
     Indication: ACUTE MYELOID LEUKAEMIA
     Dosage: 60 MG/M2, QD
     Route: 041

REACTIONS (21)
  - Haematotoxicity [Unknown]
  - Cerebrovascular accident [Fatal]
  - Off label use [Unknown]
  - Muscular weakness [Unknown]
  - Febrile neutropenia [Unknown]
  - Rash [Unknown]
  - Infection [Fatal]
  - Peripheral sensory neuropathy [Unknown]
  - Diarrhoea [Unknown]
  - Pulmonary haemorrhage [Fatal]
  - Respiratory failure [Fatal]
  - Infection [Unknown]
  - Product use in unapproved indication [Unknown]
  - Pain [Unknown]
  - Hypoproteinaemia [Unknown]
  - Hypokalaemia [Unknown]
  - Hypotension [Unknown]
  - Wheezing [Unknown]
  - Hypophosphataemia [Unknown]
  - Neuropathy peripheral [Unknown]
  - Fatigue [Unknown]
